FAERS Safety Report 5508099-6 (Version None)
Quarter: 2007Q4

REPORT INFORMATION
  Report Type: 
  Country: None (occurrence: None)
  Receive Date: 20071106
  Receipt Date: 20071024
  Transmission Date: 20080405
  Serious: Yes (Hospitalization, Other)
  Sender: FDA-Public Use
  Company Number: CS-RANBAXY-2007US-11032

PATIENT

DRUGS (1)
  1. CARVEDILOL [Suspect]
     Indication: HYPERTENSION
     Dosage: 3.125 MG, UNK
     Route: 065

REACTIONS (1)
  - CUTANEOUS VASCULITIS [None]
